FAERS Safety Report 7573625-2 (Version None)
Quarter: 2011Q2

REPORT INFORMATION
  Report Type: 
  Country: None (occurrence: None)
  Receive Date: 20110627
  Receipt Date: 20110616
  Transmission Date: 20111010
  Serious: Yes (Other)
  Sender: FDA-Public Use
  Company Number: US-ROCHE-716252

PATIENT
  Age: 57 Year
  Sex: Female

DRUGS (8)
  1. TRASTUZUMAB [Suspect]
     Dosage: INTERRUPTED
     Route: 042
     Dates: start: 20100527
  2. LAPATINIB [Suspect]
     Indication: BREAST CANCER
     Dosage: INTERRUPTED
     Route: 048
     Dates: start: 20100520
  3. TRASTUZUMAB [Suspect]
     Dosage: RESTARTED
     Route: 042
     Dates: start: 20100805
  4. CARBOPLATIN [Suspect]
     Indication: BREAST CANCER
     Route: 042
     Dates: start: 20100520
  5. LAPATINIB [Suspect]
     Dosage: RESTARTED
     Route: 048
     Dates: start: 20100804
  6. TRASTUZUMAB [Suspect]
     Indication: BREAST CANCER
     Dosage: ON DAY 1, WEEK 1 ONLY
     Route: 042
     Dates: start: 20100520
  7. DOCETAXEL [Suspect]
     Indication: BREAST CANCER
     Route: 042
     Dates: start: 20100520
  8. PEGFILGRASTIM [Concomitant]

REACTIONS (3)
  - HYPOKALAEMIA [None]
  - MYOCARDIAL ISCHAEMIA [None]
  - NEUTROPENIA [None]
